FAERS Safety Report 4644099-6 (Version None)
Quarter: 2005Q2

REPORT INFORMATION
  Report Type: 
  Country: None (occurrence: None)
  Receive Date: 20050425
  Receipt Date: 20050414
  Transmission Date: 20051028
  Serious: Yes (Hospitalization)
  Sender: FDA-Public Use
  Company Number: JP-JNJFOC-20041007320

PATIENT
  Sex: Male
  Weight: 52 kg

DRUGS (11)
  1. REMICADE [Suspect]
     Route: 042
  2. REMICADE [Suspect]
     Route: 042
  3. REMICADE [Suspect]
     Indication: RHEUMATOID ARTHRITIS
     Route: 042
  4. RHEUMATREX [Suspect]
     Indication: RHEUMATOID ARTHRITIS
     Route: 049
  5. GASTER D [Concomitant]
     Route: 049
  6. FOLIAMIN [Concomitant]
     Route: 049
  7. LOXONIN [Concomitant]
     Indication: RHEUMATOID ARTHRITIS
     Route: 049
  8. PREDONINE [Concomitant]
     Route: 049
  9. PREDONINE [Concomitant]
     Route: 049
  10. PREDONINE [Concomitant]
     Route: 049
  11. PREDONINE [Concomitant]
     Indication: RHEUMATOID ARTHRITIS
     Route: 049

REACTIONS (1)
  - PNEUMOCYSTIS JIROVECI PNEUMONIA [None]
